FAERS Safety Report 13847306 (Version 1)
Quarter: 2017Q3

REPORT INFORMATION
  Report Type: Spontaneous
  Country: FR (occurrence: FR)
  Receive Date: 20170808
  Receipt Date: 20170808
  Transmission Date: 20171127
  Serious: Yes (Hospitalization)
  Sender: FDA-Public Use
  Company Number: FR-ALLERGAN-1733483US

PATIENT
  Age: 0 Day
  Sex: Male
  Weight: 3.36 kg

DRUGS (2)
  1. ESCITALOPRAM OXALATE - BP [Suspect]
     Active Substance: ESCITALOPRAM OXALATE
     Indication: MATERNAL EXPOSURE TIMING UNSPECIFIED
     Dosage: 20 MG
     Route: 064
     Dates: start: 20160701, end: 20170324
  2. PAROXETINE ARROW [Suspect]
     Active Substance: PAROXETINE
     Indication: MATERNAL EXPOSURE TIMING UNSPECIFIED
     Dosage: 20 MG, QD
     Route: 064
     Dates: start: 20170325, end: 20170403

REACTIONS (3)
  - Hypotonia neonatal [Recovered/Resolved]
  - Respiratory distress [Recovered/Resolved]
  - Exposure during pregnancy [Unknown]

NARRATIVE: CASE EVENT DATE: 20170403
